FAERS Safety Report 5553889-7 (Version None)
Quarter: 2007Q4

REPORT INFORMATION
  Report Type: 
  Country: None (occurrence: None)
  Receive Date: 20071212
  Receipt Date: 20071212
  Transmission Date: 20080405
  Serious: Yes (Hospitalization)
  Sender: FDA-Public Use
  Company Number: None

PATIENT
  Age: 63 Year
  Sex: Male

DRUGS (1)
  1. COUMADIN [Suspect]

REACTIONS (7)
  - COLON NEOPLASM [None]
  - FAECES DISCOLOURED [None]
  - HAEMORRHAGE [None]
  - INTERNATIONAL NORMALISED RATIO ABNORMAL [None]
  - LOSS OF CONSCIOUSNESS [None]
  - OCCULT BLOOD [None]
  - OCCULT BLOOD POSITIVE [None]
